FAERS Safety Report 17614428 (Version 1)
Quarter: 2020Q2

REPORT INFORMATION
  Report Type: Spontaneous
  Country: ES (occurrence: ES)
  Receive Date: 20200402
  Receipt Date: 20200402
  Transmission Date: 20200713
  Serious: Yes (Death, Other)
  Sender: FDA-Public Use
  Company Number: ES-ALKEM LABORATORIES LIMITED-ES-ALKEM-2019-07836

PATIENT
  Age: 51 Year
  Sex: Female

DRUGS (2)
  1. SERTRALINE [Suspect]
     Active Substance: SERTRALINE HYDROCHLORIDE
     Indication: PRODUCT USED FOR UNKNOWN INDICATION
     Dosage: UNK
     Route: 065
  2. QUETIAPINE FUMARATE. [Suspect]
     Active Substance: QUETIAPINE FUMARATE
     Indication: PRODUCT USED FOR UNKNOWN INDICATION
     Dosage: UNK
     Route: 065

REACTIONS (1)
  - Sudden death [Fatal]
